FAERS Safety Report 12485612 (Version 1)
Quarter: 2016Q2

REPORT INFORMATION
  Report Type: Report from Study
  Country: US (occurrence: US)
  Receive Date: 20160621
  Receipt Date: 20160621
  Transmission Date: 20160815
  Serious: Yes (Hospitalization)
  Sender: FDA-Public Use
  Company Number: US-JNJFOC-20160614430

PATIENT
  Age: 16 Year
  Sex: Female
  Weight: 56.7 kg

DRUGS (3)
  1. UCERIS [Concomitant]
     Active Substance: BUDESONIDE
     Route: 065
  2. HUMIRA [Concomitant]
     Active Substance: ADALIMUMAB
     Route: 065
  3. REMICADE [Suspect]
     Active Substance: INFLIXIMAB
     Indication: INFLAMMATORY BOWEL DISEASE
     Route: 042
     Dates: start: 20111014, end: 201301

REACTIONS (1)
  - Rectal stenosis [Recovered/Resolved]

NARRATIVE: CASE EVENT DATE: 20151220
